FAERS Safety Report 17105319 (Version 2)
Quarter: 2019Q4

REPORT INFORMATION
  Report Type: Spontaneous
  Country: DE (occurrence: DE)
  Receive Date: 20191203
  Receipt Date: 20191206
  Transmission Date: 20200122
  Serious: Yes (Life-Threatening, Hospitalization, Other)
  Sender: FDA-Public Use
  Company Number: DE-MYLANLABS-2019M1116763

PATIENT
  Age: 86 Year
  Sex: Male
  Weight: 74 kg

DRUGS (13)
  1. VIGANTOL                           /00318501/ [Concomitant]
     Active Substance: CHOLECALCIFEROL
     Dosage: QD,20000 IE, 1-0-0-0 ALLE 2
     Route: 048
  2. DICLOFENAC [Suspect]
     Active Substance: DICLOFENAC
     Indication: PRODUCT USED FOR UNKNOWN INDICATION
     Dosage: NK MG, NK, TABLETTEN
     Route: 048
  3. ENTRESTO [Concomitant]
     Active Substance: SACUBITRIL\VALSARTAN
     Dosage: UNK, BID,49|51 MG, 1-0-1-0
     Route: 048
  4. BICANORM [Concomitant]
     Active Substance: SODIUM BICARBONATE
     Dosage: 1 GRAM, QD
     Route: 048
  5. PREGABALIN. [Concomitant]
     Active Substance: PREGABALIN
     Dosage: 25 MILLIGRAM, QD
     Route: 048
  6. TAMSULOSIN [Concomitant]
     Active Substance: TAMSULOSIN
     Dosage: 0.4 MILLIGRAM, QD
     Route: 048
  7. ACETYLSALICYLIC ACID [Suspect]
     Active Substance: ASPIRIN
     Indication: PRODUCT USED FOR UNKNOWN INDICATION
     Dosage: 100 MILLIGRAM, QD
     Route: 048
  8. SITAGLIPTIN [Concomitant]
     Active Substance: SITAGLIPTIN
     Indication: PRODUCT USED FOR UNKNOWN INDICATION
     Dosage: 50 MILLIGRAM, QD
     Route: 048
  9. TORASEMID [Concomitant]
     Active Substance: TORSEMIDE
     Dosage: 10 MILLIGRAM, 2-2-0-0
     Route: 048
  10. LAXOBERAL [Concomitant]
     Active Substance: SODIUM PICOSULFATE
     Dosage: 7.5 MILLIGRAM PER MILLILITRE, PRN
     Route: 048
  11. AMLODIPIN                          /00972401/ [Concomitant]
     Active Substance: AMLODIPINE BESYLATE
     Dosage: 5 MILLIGRAM, BID
     Route: 048
  12. URAPIDIL [Concomitant]
     Active Substance: URAPIDIL
     Dosage: 60 MILLIGRAM, BID
     Route: 048
  13. BETAHISTIN                         /00141802/ [Concomitant]
     Active Substance: BETAHISTINE HYDROCHLORIDE
     Dosage: 60 MILLIGRAM, QD
     Route: 048

REACTIONS (5)
  - Product prescribing error [Unknown]
  - Hypotension [Unknown]
  - Renal impairment [Unknown]
  - Haematochezia [Unknown]
  - Hypertension [Unknown]
